FAERS Safety Report 26168466 (Version 1)
Quarter: 2025Q4

REPORT INFORMATION
  Report Type: Spontaneous
  Country: EU (occurrence: EU)
  Receive Date: 20251217
  Receipt Date: 20251217
  Transmission Date: 20260118
  Serious: Yes (Death, Other)
  Sender: HIKMA
  Company Number: None

PATIENT
  Age: 78 Year
  Sex: Male
  Weight: 83 kg

DRUGS (3)
  1. CARBOPLATIN [Suspect]
     Active Substance: CARBOPLATIN
     Indication: Lung neoplasm malignant
     Dosage: 300 MILLIGRAM, CYCLICAL
     Route: 042
     Dates: start: 20250827, end: 20251016
  2. DEXAMETHASONE [Suspect]
     Active Substance: DEXAMETHASONE
     Indication: Chemotherapy side effect prophylaxis
     Dosage: 4 MILLIGRAM, ON THE MORNING OF ADMINISTRATION AND FOR THE FOLLOWING THREE DAYS
     Route: 048
     Dates: start: 20250827, end: 20251019
  3. PACLITAXEL [Suspect]
     Active Substance: PACLITAXEL
     Indication: Lung neoplasm malignant
     Dosage: 175 MILLIGRAM/SQ. METER CYCLICAL
     Route: 042
     Dates: start: 20250827, end: 20251016

REACTIONS (2)
  - Fournier^s gangrene [Fatal]
  - Septic shock [Fatal]

NARRATIVE: CASE EVENT DATE: 20251027
